FAERS Safety Report 11581868 (Version 1)
Quarter: 2015Q4

REPORT INFORMATION
  Report Type: Spontaneous
  Country: US (occurrence: US)
  Receive Date: 20151001
  Receipt Date: 20151001
  Transmission Date: 20160304
  Serious: No
  Sender: FDA-Public Use
  Company Number: US-ROCHE-677135

PATIENT
  Age: 49 Year
  Sex: Male
  Weight: 75.3 kg

DRUGS (4)
  1. ROBAXIN [Concomitant]
     Active Substance: METHOCARBAMOL
     Dosage: DOSE: 750
     Route: 048
  2. COPEGUS [Suspect]
     Active Substance: RIBAVIRIN
     Indication: HEPATITIS C
     Dosage: DOSE: 200 MG, 2 IN THE MORNING AND 3 IN THE EVENING
     Route: 048
     Dates: start: 20090531, end: 20091112
  3. AMITRIPTYLINE [Concomitant]
     Active Substance: AMITRIPTYLINE
     Dosage: AT BEDTIME
     Route: 048
  4. PEGASYS [Suspect]
     Active Substance: PEGINTERFERON ALFA-2A
     Indication: HEPATITIS C
     Route: 058
     Dates: start: 20090531, end: 20091112

REACTIONS (3)
  - Depression [Unknown]
  - Dizziness [Unknown]
  - Neuropathy peripheral [Unknown]

NARRATIVE: CASE EVENT DATE: 200906
